FAERS Safety Report 6455107-4 (Version None)
Quarter: 2009Q4

REPORT INFORMATION
  Report Type: 
  Country: None (occurrence: None)
  Receive Date: 20091118
  Receipt Date: 20091109
  Transmission Date: 20100525
  Serious: Yes (Hospitalization)
  Sender: FDA-Public Use
  Company Number: WAES 0909USA04137

PATIENT
  Age: 73 Year
  Sex: Male

DRUGS (6)
  1. CAP VORINOSTAT [Suspect]
     Indication: MULTIPLE MYELOMA
     Dosage: 400 MG/DAILY PO
     Route: 048
     Dates: start: 20090526, end: 20090720
  2. CAP VORINOSTAT [Suspect]
     Indication: MULTIPLE MYELOMA
     Dosage: 400 MG/DAILY PO
     Route: 048
     Dates: start: 20090811, end: 20090824
  3. BORTEZOMIB [Suspect]
     Indication: MULTIPLE MYELOMA
     Dosage: 2.11 MG/DAILY; 2.17 MG/DAILY; 1.631 MG/DAILY; 1.106 MG/DAILY
     Dates: start: 20090526, end: 20090605
  4. BORTEZOMIB [Suspect]
     Indication: MULTIPLE MYELOMA
     Dosage: 2.11 MG/DAILY; 2.17 MG/DAILY; 1.631 MG/DAILY; 1.106 MG/DAILY
     Dates: start: 20090616, end: 20090626
  5. BORTEZOMIB [Suspect]
     Indication: MULTIPLE MYELOMA
     Dosage: 2.11 MG/DAILY; 2.17 MG/DAILY; 1.631 MG/DAILY; 1.106 MG/DAILY
     Dates: start: 20090707, end: 20090717
  6. BORTEZOMIB [Suspect]
     Indication: MULTIPLE MYELOMA
     Dosage: 2.11 MG/DAILY; 2.17 MG/DAILY; 1.631 MG/DAILY; 1.106 MG/DAILY
     Dates: start: 20090811, end: 20090821

REACTIONS (9)
  - BLOOD CREATININE INCREASED [None]
  - BLOOD UREA INCREASED [None]
  - DECREASED APPETITE [None]
  - MALIGNANT NEOPLASM PROGRESSION [None]
  - MALNUTRITION [None]
  - MULTIPLE MYELOMA [None]
  - NAUSEA [None]
  - VOMITING [None]
  - WHITE BLOOD CELL COUNT INCREASED [None]
